FAERS Safety Report 12699520 (Version 2)
Quarter: 2016Q3

REPORT INFORMATION
  Report Type: Report from Study
  Country: US (occurrence: US)
  Receive Date: 20160830
  Receipt Date: 20160920
  Transmission Date: 20161109
  Serious: Yes (Hospitalization)
  Sender: FDA-Public Use
  Company Number: US-JNJFOC-20160816300

PATIENT
  Age: 68 Year
  Sex: Male
  Weight: 115.67 kg

DRUGS (1)
  1. ZYTIGA [Suspect]
     Active Substance: ABIRATERONE ACETATE
     Indication: PROSTATE CANCER
     Dosage: ABOUT 8 MONTHS AGO
     Route: 048
     Dates: start: 20150412, end: 20160724

REACTIONS (3)
  - Blood potassium decreased [Recovered/Resolved]
  - Chest pain [Recovering/Resolving]
  - Lymphadenopathy [Recovering/Resolving]

NARRATIVE: CASE EVENT DATE: 20160724
